FAERS Safety Report 6223585-1 (Version None)
Quarter: 2009Q2

REPORT INFORMATION
  Report Type: 
  Country: None (occurrence: None)
  Receive Date: 20090610
  Receipt Date: 20090525
  Transmission Date: 20091009
  Serious: Yes (Hospitalization)
  Sender: FDA-Public Use
  Company Number: 8047172

PATIENT
  Age: 60 Year
  Sex: Female

DRUGS (5)
  1. KEPPRA [Suspect]
     Indication: STATUS EPILEPTICUS
     Dosage: 750 MG 2/D IV
     Route: 042
     Dates: start: 20090418, end: 20090525
  2. KEPPRA [Suspect]
     Indication: STATUS EPILEPTICUS
     Dosage: PO
     Route: 048
     Dates: start: 20090525
  3. LOVENOX [Concomitant]
  4. CHEMOTHERAPY [Concomitant]
  5. CORTICOIDS [Concomitant]

REACTIONS (4)
  - DEPRESSION [None]
  - OXYGEN SATURATION DECREASED [None]
  - SOMNOLENCE [None]
  - THROMBOCYTOPENIA [None]
